FAERS Safety Report 17542678 (Version 1)
Quarter: 2020Q1

REPORT INFORMATION
  Report Type: Spontaneous
  Country: US (occurrence: US)
  Receive Date: 20200315
  Receipt Date: 20200315
  Transmission Date: 20200409
  Serious: No
  Sender: FDA-Public Use
  Company Number: US-ASTRAZENECA-2020SE28503

PATIENT
  Age: 3480 Week
  Sex: Female
  Weight: 79.8 kg

DRUGS (3)
  1. BYDUREON BCISE [Suspect]
     Active Substance: EXENATIDE
     Indication: TYPE 2 DIABETES MELLITUS
     Route: 058
     Dates: start: 2018
  2. BYDUREON BCISE [Suspect]
     Active Substance: EXENATIDE
     Indication: BLOOD GLUCOSE ABNORMAL
     Route: 058
     Dates: start: 2018
  3. TOUJEO [Concomitant]
     Active Substance: INSULIN GLARGINE

REACTIONS (12)
  - Wrong technique in device usage process [Unknown]
  - Nervousness [Unknown]
  - Intentional device misuse [Unknown]
  - Device leakage [Unknown]
  - Blood glucose decreased [Unknown]
  - Renal impairment [Unknown]
  - Injection site haemorrhage [Unknown]
  - Fluid retention [Unknown]
  - Incorrect dose administered by device [Unknown]
  - Injection site pain [Unknown]
  - Injection site nodule [Unknown]
  - Device issue [Unknown]

NARRATIVE: CASE EVENT DATE: 20200217
